FAERS Safety Report 7319986-0 (Version None)
Quarter: 2011Q1

REPORT INFORMATION
  Report Type: 
  Country: None (occurrence: None)
  Receive Date: 20110228
  Receipt Date: 20110221
  Transmission Date: 20110831
  Serious: Yes (Other)
  Sender: FDA-Public Use
  Company Number: US-AMGEN-USASP2011010162

PATIENT
  Age: 64 Year
  Sex: Male

DRUGS (1)
  1. ENBREL [Suspect]
     Indication: PSORIASIS
     Dates: start: 20070509, end: 20110118

REACTIONS (8)
  - SINUSITIS [None]
  - WHEEZING [None]
  - PAIN IN EXTREMITY [None]
  - OEDEMA PERIPHERAL [None]
  - PARAESTHESIA [None]
  - GAIT DISTURBANCE [None]
  - HYPOAESTHESIA [None]
  - POOR QUALITY SLEEP [None]
